FAERS Safety Report 4716815-6 (Version None)
Quarter: 2005Q3

REPORT INFORMATION
  Report Type: 
  Country: None (occurrence: None)
  Receive Date: 20050719
  Receipt Date: 20050707
  Transmission Date: 20060218
  Serious: Yes (Other)
  Sender: FDA-Public Use
  Company Number: NZ-AMGEN-US141695

PATIENT
  Age: 6 Year
  Sex: Male

DRUGS (3)
  1. NEUPOGEN [Suspect]
     Indication: CHEMOTHERAPY
  2. ETOPOSIDE [Concomitant]
     Dates: start: 20050702
  3. CYCLOPHOSPHAMIDE [Concomitant]
     Dates: start: 20050702

REACTIONS (6)
  - DISORIENTATION [None]
  - DRUG HYPERSENSITIVITY [None]
  - HYPERSENSITIVITY [None]
  - RASH [None]
  - SYNCOPE [None]
  - VISUAL DISTURBANCE [None]
